FAERS Safety Report 7943907-0 (Version None)
Quarter: 2011Q4

REPORT INFORMATION
  Report Type: 
  Country: None (occurrence: None)
  Receive Date: 20111128
  Receipt Date: 20111117
  Transmission Date: 20120403
  Serious: Yes (Death, Other)
  Sender: FDA-Public Use
  Company Number: CA-ROCHE-GNE307879

PATIENT
  Sex: Male

DRUGS (5)
  1. LIPITOR [Concomitant]
  2. ADALAT [Concomitant]
  3. LUCENTIS [Suspect]
     Indication: PRODUCT USED FOR UNKNOWN INDICATION
     Route: 050
     Dates: start: 20100428
  4. CILAZAPRIL/HYDROCHLOROTHIAZIDE [Concomitant]
  5. CILAZAPRIL [Concomitant]

REACTIONS (2)
  - LUNG DISORDER [None]
  - NEOPLASM MALIGNANT [None]
